FAERS Safety Report 7599605-9 (Version None)
Quarter: 2011Q3

REPORT INFORMATION
  Report Type: 
  Country: None (occurrence: None)
  Receive Date: 20110711
  Receipt Date: 20110128
  Transmission Date: 20111222
  Serious: Yes (Death, Hospitalization, Other)
  Sender: FDA-Public Use
  Company Number: US-BAYER-201010445NA

PATIENT
  Age: 80 Year
  Sex: Female
  Weight: 57 kg

DRUGS (27)
  1. CONTRAST MEDIA [Concomitant]
     Indication: CATHETERISATION CARDIAC
     Dosage: UNK
     Dates: start: 20001024
  2. TRASYLOL [Suspect]
     Indication: CORONARY ARTERY BYPASS
     Dosage: 100 ML, UNK
     Route: 042
     Dates: start: 20001025, end: 20001025
  3. PROTAMINE SULFATE [Concomitant]
     Dosage: 370 GM
     Route: 042
     Dates: start: 20001025, end: 20001025
  4. SYNTHROID [Concomitant]
     Dosage: 0.1 MG, QD
     Route: 048
     Dates: start: 19880801
  5. COVERA-HS [Concomitant]
     Route: 048
  6. ALBUMIN (HUMAN) [Concomitant]
     Dosage: UNK
     Route: 042
     Dates: start: 20001025
  7. VERPAMIL HCL [Concomitant]
     Dosage: 240 MG, UNK
     Route: 048
  8. IMDUR [Concomitant]
     Dosage: 60 MG, UNK
     Route: 048
  9. MANNITOL [Concomitant]
     Dosage: 12.5 G, UNK
     Route: 042
     Dates: start: 20001025
  10. NIPRIDE [Concomitant]
     Dosage: TITRATED
     Route: 042
     Dates: start: 20001025, end: 20001025
  11. GENTAMICIN [Concomitant]
     Dosage: UNK
     Dates: start: 20001028
  12. HEPARIN [Concomitant]
     Dosage: 21,000 UNITS
     Route: 042
     Dates: start: 20001025, end: 20001025
  13. CEFAZOLIN [Concomitant]
     Dosage: 1 GM
     Route: 042
     Dates: start: 20001025, end: 20001025
  14. PHENYLEPHRINE HCL [Concomitant]
     Dosage: 50 MG, UNK
     Route: 042
     Dates: start: 20001025
  15. VANCOMYCIN [Concomitant]
     Dosage: UNK
     Dates: start: 20001113
  16. TRASYLOL [Suspect]
     Indication: AORTIC VALVE REPLACEMENT
  17. TRASYLOL [Suspect]
     Indication: ENDARTERECTOMY OF AORTA
  18. HEPARIN [Concomitant]
     Dosage: 26000 U, UNK
     Route: 042
     Dates: start: 20001025
  19. PROTAMINE SULFATE [Concomitant]
     Dosage: 270 MG, UNK
     Route: 042
     Dates: start: 20001025
  20. ACETYLSALICYLIC ACID SRT [Concomitant]
     Dosage: 81 MG, UNK
     Route: 048
     Dates: start: 19880801
  21. PRAVACHOL [Concomitant]
     Indication: HYPERCHOLESTEROLAEMIA
  22. PANCURONIUM [Concomitant]
     Dosage: 10 MG, UNK
     Route: 042
     Dates: start: 20001025
  23. RED BLOOD CELLS [Concomitant]
     Dosage: 2 U, UNK
     Route: 042
     Dates: start: 20001025
  24. DOPAMINE HYDROCHLORIDE [Concomitant]
     Dosage: UNK
     Route: 042
     Dates: start: 20001025, end: 20001025
  25. PRILOSEC [Concomitant]
     Dosage: 20 MG, UNK
     Route: 048
  26. FENTANYL [Concomitant]
     Dosage: 40 ML, UNK
     Route: 042
     Dates: start: 20001025
  27. VERSED [Concomitant]
     Dosage: 10 MG, UNK
     Route: 042
     Dates: start: 20001025

REACTIONS (16)
  - RENAL FAILURE [None]
  - STRESS [None]
  - DEATH [None]
  - CEREBROVASCULAR ACCIDENT [None]
  - HAEMORRHAGE [None]
  - RENAL INJURY [None]
  - ANHEDONIA [None]
  - INJURY [None]
  - ANXIETY [None]
  - MULTI-ORGAN FAILURE [None]
  - COAGULOPATHY [None]
  - UNEVALUABLE EVENT [None]
  - RENAL IMPAIRMENT [None]
  - EMOTIONAL DISTRESS [None]
  - PAIN [None]
  - FEAR [None]
